FAERS Safety Report 5774389-5 (Version None)
Quarter: 2008Q2

REPORT INFORMATION
  Report Type: 
  Country: None (occurrence: None)
  Receive Date: 20080616
  Receipt Date: 20080605
  Transmission Date: 20081010
  Serious: Yes (Other)
  Sender: FDA-Public Use
  Company Number: US-PFIZER INC-2008032924

PATIENT
  Sex: Female
  Weight: 63.5 kg

DRUGS (2)
  1. AROMASIN [Suspect]
     Indication: BREAST CANCER
     Route: 048
  2. SYNTHROID [Concomitant]
     Dosage: DAILY DOSE:100MCG-FREQ:DAILY
     Route: 048

REACTIONS (2)
  - INSOMNIA [None]
  - MENISCUS LESION [None]
